FAERS Safety Report 14761734 (Version 2)
Quarter: 2018Q2

REPORT INFORMATION
  Report Type: Spontaneous
  Country: JP (occurrence: JP)
  Receive Date: 20180416
  Receipt Date: 20180529
  Transmission Date: 20180711
  Serious: No
  Sender: FDA-Public Use
  Company Number: JP-BIOVERATIV-2018BV000169

PATIENT
  Age: 4 Decade
  Sex: Male
  Weight: 62.2 kg

DRUGS (2)
  1. ALPROLIX [Suspect]
     Active Substance: EFTRENONACOG ALFA
     Dosage: ADDITIONAL DOSE
     Route: 042
  2. ALPROLIX [Suspect]
     Active Substance: EFTRENONACOG ALFA
     Indication: FACTOR IX DEFICIENCY
     Dosage: ROUTINE TREATMENT
     Route: 042

REACTIONS (1)
  - Large intestine polyp [Recovered/Resolved]
